FAERS Safety Report 8318727-8 (Version None)
Quarter: 2012Q2

REPORT INFORMATION
  Report Type: 
  Country: None (occurrence: None)
  Receive Date: 20120427
  Receipt Date: 20120416
  Transmission Date: 20120825
  Serious: Yes (Other)
  Sender: FDA-Public Use
  Company Number: US-JNJFOC-20120407758

PATIENT
  Sex: Female
  Weight: 81.65 kg

DRUGS (6)
  1. REMICADE [Suspect]
     Route: 042
     Dates: start: 20080519
  2. REMICADE [Suspect]
     Indication: COLITIS
     Dosage: TOTAL OF 27 INFUSIONS
     Route: 042
     Dates: start: 20120330
  3. UNKNOWN MEDICATION [Concomitant]
     Indication: PAIN
     Dosage: 5/325MG
     Route: 048
  4. REMICADE [Suspect]
     Indication: RHEUMATOID ARTHRITIS
     Route: 042
     Dates: start: 20080519
  5. REMICADE [Suspect]
     Dosage: TOTAL OF 27 INFUSIONS
     Route: 042
     Dates: start: 20120330
  6. LISINOPRIL [Concomitant]
     Indication: HYPERTENSION
     Route: 048

REACTIONS (6)
  - THERMAL BURN [None]
  - SKIN REACTION [None]
  - CHILLS [None]
  - PAIN IN EXTREMITY [None]
  - INFUSION RELATED REACTION [None]
  - WEIGHT INCREASED [None]
